FAERS Safety Report 8079726-7 (Version None)
Quarter: 2012Q1

REPORT INFORMATION
  Report Type: 
  Country: None (occurrence: None)
  Receive Date: 20120128
  Receipt Date: 20110719
  Transmission Date: 20120608
  Serious: No
  Sender: FDA-Public Use
  Company Number: US-ABBOTT-11P-163-0840322-00

PATIENT
  Sex: Male

DRUGS (6)
  1. PREDNISONE TAB [Concomitant]
     Indication: RHEUMATOID ARTHRITIS
     Dosage: 5 MG DAILY
  2. HUMIRA [Suspect]
     Indication: PSORIATIC ARTHROPATHY
     Route: 058
     Dates: start: 20110625
  3. CALCIUM D [Concomitant]
     Indication: SUPPLEMENTATION THERAPY
     Dosage: 2 TABLETS DAILY
  4. LISINOPRIL [Concomitant]
     Indication: HYPERTENSION
     Dosage: 20 MG DAILY
  5. HYDROXYCHLOR [Concomitant]
     Indication: PSORIATIC ARTHROPATHY
     Dosage: 200 MG DAILY
  6. HYDROCODONE BITARTRATE [Concomitant]
     Indication: PAIN

REACTIONS (3)
  - NASOPHARYNGITIS [None]
  - UPPER RESPIRATORY TRACT CONGESTION [None]
  - COUGH [None]
